FAERS Safety Report 18065595 (Version 1)
Quarter: 2020Q3

REPORT INFORMATION
  Report Type: Spontaneous
  Country: US (occurrence: US)
  Receive Date: 20200724
  Receipt Date: 20200724
  Transmission Date: 20201103
  Serious: Yes (Other)
  Sender: FDA-Public Use
  Company Number: US-MYLANLABS-2020M1066888

PATIENT
  Age: 47 Year
  Sex: Male

DRUGS (6)
  1. VALPROIC ACID. [Suspect]
     Active Substance: VALPROIC ACID
     Indication: BIPOLAR II DISORDER
     Dosage: 2000 MILLIGRAM, QD, EVERY NIGHT AT BEDTIME
     Route: 065
  2. QUETIAPINE. [Suspect]
     Active Substance: QUETIAPINE
     Indication: BIPOLAR II DISORDER
     Dosage: 300 MILLIGRAM, QD EVERY NIGHT AT BEDTIME
     Route: 065
  3. AMFETAMINE/DEXAMFETAMINE [Suspect]
     Active Substance: AMPHETAMINE SULFATE\DEXTROAMPHETAMINE
     Indication: BIPOLAR II DISORDER
     Dosage: 20 MILLIGRAM, TID, THREE TIMES DAILY
     Route: 065
  4. TOPIRAMATE. [Suspect]
     Active Substance: TOPIRAMATE
     Indication: SLEEP-RELATED EATING DISORDER
     Dosage: 50 MG, QD, EVERY NIGHT AT BEDTIME
     Route: 065
  5. DULOXETINE. [Suspect]
     Active Substance: DULOXETINE
     Indication: BIPOLAR II DISORDER
     Dosage: 120 MILLIGRAM, QD
     Route: 065
  6. TOPIRAMATE. [Suspect]
     Active Substance: TOPIRAMATE
     Indication: SOMNAMBULISM
     Dosage: 25 MG, QD, EVERY NIGHT AT BEDTIME, FURTHER TITRATED TO 50MG EVERY NIGHT AT BEDTIME OVER 4 WEEKS
     Route: 065

REACTIONS (7)
  - Sleep-related eating disorder [Recovered/Resolved]
  - Choking [Recovered/Resolved]
  - Weight increased [Unknown]
  - Somnambulism [Recovered/Resolved]
  - Cognitive disorder [Unknown]
  - Alopecia [Unknown]
  - Restless legs syndrome [Recovered/Resolved]
